FAERS Safety Report 25456414 (Version 2)
Quarter: 2025Q3

REPORT INFORMATION
  Report Type: Spontaneous
  Country: US (occurrence: US)
  Receive Date: 20250619
  Receipt Date: 20250701
  Transmission Date: 20251021
  Serious: Yes (Hospitalization)
  Sender: DOMPE FARMACEUTICI
  Company Number: US-FARMAPROD-202505-1793

PATIENT
  Age: 82 Year
  Sex: Female

DRUGS (13)
  1. OXERVATE [Suspect]
     Active Substance: CENEGERMIN-BKBJ
     Indication: Keratitis
     Route: 047
     Dates: start: 20250520
  2. OXERVATE [Suspect]
     Active Substance: CENEGERMIN-BKBJ
  3. VITAMIN B12 [Concomitant]
     Active Substance: CYANOCOBALAMIN
  4. CRANBERRY [Concomitant]
     Active Substance: CRANBERRY
  5. CALCIUM;MAGNESIUM;ZINC [Concomitant]
  6. XANAX [Concomitant]
     Active Substance: ALPRAZOLAM
  7. SYSTANE (HYPROMELLOSE 2910 (4000 MPA.S)) [Concomitant]
     Active Substance: HYPROMELLOSE 2910 (4000 MPA.S)
  8. NEOMYCIN;POLYMYXIN B;DEXAMETHOXAZONE [Concomitant]
  9. VALACYCLOVIR HYDROCHLORIDE [Concomitant]
     Active Substance: VALACYCLOVIR HYDROCHLORIDE
  10. PROPRANOLOL HYDROCHLORIDE [Concomitant]
     Active Substance: PROPRANOLOL HYDROCHLORIDE
  11. ROSUVASTATIN CALCIUM [Concomitant]
     Active Substance: ROSUVASTATIN CALCIUM
  12. PREGABALIN [Concomitant]
     Active Substance: PREGABALIN
  13. VILAZODONE HYDROCHLORIDE [Concomitant]
     Active Substance: VILAZODONE HYDROCHLORIDE

REACTIONS (5)
  - Hospitalisation [Unknown]
  - Erythema of eyelid [Unknown]
  - Eyelid pain [Unknown]
  - Swelling of eyelid [Unknown]
  - Off label use [Unknown]

NARRATIVE: CASE EVENT DATE: 20250526
